FAERS Safety Report 5572832-8 (Version None)
Quarter: 2007Q4

REPORT INFORMATION
  Report Type: 
  Country: None (occurrence: None)
  Receive Date: 20071223
  Receipt Date: 20071217
  Transmission Date: 20080405
  Serious: Yes (Hospitalization, Other)
  Sender: FDA-Public Use
  Company Number: PHBS2007TN20425

PATIENT
  Age: 17 Year
  Sex: Female

DRUGS (2)
  1. TEGRETOL [Suspect]
     Indication: BIPOLAR I DISORDER
     Dosage: 1 1/2 TABLETS/DAY
     Route: 048
     Dates: start: 20071107, end: 20071115
  2. LARGACTIL [Suspect]
     Dosage: 100 MG, UNK

REACTIONS (3)
  - HAEMATEMESIS [None]
  - NAUSEA [None]
  - VOMITING [None]
